FAERS Safety Report 8158030-2 (Version None)
Quarter: 2012Q1

REPORT INFORMATION
  Report Type: 
  Country: None (occurrence: None)
  Receive Date: 20120222
  Receipt Date: 20120213
  Transmission Date: 20120608
  Serious: Yes (Hospitalization)
  Sender: FDA-Public Use
  Company Number: PHHY2012US012806

PATIENT
  Sex: Female
  Weight: 62 kg

DRUGS (2)
  1. MYFORTIC [Suspect]
     Indication: RENAL TRANSPLANT
     Dosage: 1440 MG, DAILY
     Route: 048
     Dates: start: 20080117, end: 20080208
  2. MYFORTIC [Suspect]
     Dosage: 720 MG, DAILY
     Route: 048
     Dates: start: 20080208

REACTIONS (6)
  - METABOLIC ACIDOSIS [None]
  - NAUSEA [None]
  - VOMITING [None]
  - GASTROOESOPHAGEAL REFLUX DISEASE [None]
  - DIARRHOEA [None]
  - DEHYDRATION [None]
